FAERS Safety Report 5574421-8 (Version None)
Quarter: 2007Q4

REPORT INFORMATION
  Report Type: 
  Country: None (occurrence: None)
  Receive Date: 20071226
  Receipt Date: 20071226
  Transmission Date: 20080405
  Serious: Yes (Hospitalization)
  Sender: FDA-Public Use
  Company Number: None

PATIENT
  Age: 23 Year
  Sex: Male

DRUGS (1)
  1. OXACILLIN [Suspect]
     Indication: OSTEOMYELITIS
     Dosage: 2GM OTHER IV
     Route: 042
     Dates: start: 20071113, end: 20071216

REACTIONS (1)
  - HEPATIC ENZYME INCREASED [None]
